FAERS Safety Report 21485954 (Version 5)
Quarter: 2023Q1

REPORT INFORMATION
  Report Type: Spontaneous
  Country: CA (occurrence: CA)
  Receive Date: 20221020
  Receipt Date: 20230227
  Transmission Date: 20230418
  Serious: Yes (Other)
  Sender: FDA-Public Use
  Company Number: CA-PFIZER INC-202200511155

PATIENT
  Age: 70 Year
  Sex: Male

DRUGS (1)
  1. ABRILADA [Suspect]
     Active Substance: ADALIMUMAB-AFZB
     Indication: Colitis ulcerative
     Dosage: 40 MG, WEEKLY
     Route: 058
     Dates: start: 20220504, end: 2022

REACTIONS (17)
  - Bipolar disorder [Unknown]
  - Drug ineffective [Unknown]
  - Off label use [Unknown]
  - Fatigue [Not Recovered/Not Resolved]
  - COVID-19 [Not Recovered/Not Resolved]
  - Dizziness [Not Recovered/Not Resolved]
  - Balance disorder [Unknown]
  - Ear discomfort [Unknown]
  - Condition aggravated [Not Recovered/Not Resolved]
  - Dyspnoea [Unknown]
  - Myalgia [Unknown]
  - Musculoskeletal stiffness [Unknown]
  - Weight decreased [Unknown]
  - Abdominal pain lower [Unknown]
  - Depression [Unknown]
  - Cyclothymic disorder [Unknown]
  - Malaise [Unknown]

NARRATIVE: CASE EVENT DATE: 20220101
